FAERS Safety Report 23246661 (Version 3)
Quarter: 2024Q1

REPORT INFORMATION
  Report Type: Spontaneous
  Country: US (occurrence: US)
  Receive Date: 20231130
  Receipt Date: 20240206
  Transmission Date: 20240409
  Serious: Yes (Other)
  Sender: FDA-Public Use
  Company Number: US-BAYER-2023A170759

PATIENT
  Age: 63 Year
  Sex: Male

DRUGS (1)
  1. GENUINE BAYER ASPIRIN [Suspect]
     Active Substance: ASPIRIN
     Indication: Prophylaxis
     Dosage: 1 CUT IN HALF PER DAY
     Route: 048
     Dates: start: 20231122, end: 20231203

REACTIONS (3)
  - Choking [Unknown]
  - Product solubility abnormal [Unknown]
  - Wrong technique in product usage process [None]
